FAERS Safety Report 8370838-7 (Version None)
Quarter: 2012Q2

REPORT INFORMATION
  Report Type: 
  Country: None (occurrence: None)
  Receive Date: 20120518
  Receipt Date: 20110422
  Transmission Date: 20120825
  Serious: No
  Sender: FDA-Public Use
  Company Number: US-ASTRAZENECA-2011SE27414

PATIENT
  Sex: Male

DRUGS (7)
  1. LIPITOR [Concomitant]
     Dosage: UNKNOWN
  2. DIGOXIN [Concomitant]
     Dosage: UNKNOWN
  3. PRADAXA /01633202/ [Concomitant]
     Dosage: UNKNOWN
  4. PRILOSEC OTC [Suspect]
     Indication: DYSPEPSIA
     Route: 048
     Dates: start: 20110408, end: 20110422
  5. AMIODARONE HCL [Concomitant]
     Dosage: UNKNOWN
  6. LASIX [Concomitant]
     Dosage: UNKNOWN
  7. POTASSIUM CHLORIDE [Concomitant]
     Dosage: UNKNOWN

REACTIONS (1)
  - DYSPHAGIA [None]
